FAERS Safety Report 22274161 (Version 3)
Quarter: 2023Q2

REPORT INFORMATION
  Report Type: Spontaneous
  Country: US (occurrence: US)
  Receive Date: 20230502
  Receipt Date: 20230508
  Transmission Date: 20230722
  Serious: Yes (Hospitalization)
  Sender: FDA-Public Use
  Company Number: US-PFIZER INC-202300171586

PATIENT
  Age: 48 Year
  Sex: Female
  Weight: 115.21 kg

DRUGS (1)
  1. PAXLOVID [Interacting]
     Active Substance: NIRMATRELVIR\RITONAVIR
     Indication: COVID-19 treatment
     Dosage: UNK

REACTIONS (2)
  - Drug interaction [Unknown]
  - Nausea [Unknown]

NARRATIVE: CASE EVENT DATE: 20220901
